FAERS Safety Report 9352710 (Version 4)
Quarter: 2014Q1

REPORT INFORMATION
  Report Type: Report from Study
  Country: JP (occurrence: JP)
  Receive Date: 20130618
  Receipt Date: 20140227
  Transmission Date: 20141002
  Serious: Yes (Death, Hospitalization)
  Sender: FDA-Public Use
  Company Number: JP-PFIZER INC-2013177479

PATIENT
  Age: 59 Year
  Sex: Male
  Weight: 78 kg

DRUGS (8)
  1. XALKORI [Suspect]
     Indication: NON-SMALL CELL LUNG CANCER
     Dosage: 250 MG, 2X/DAY
     Route: 048
     Dates: start: 20130426, end: 20130502
  2. XALKORI [Suspect]
     Dosage: 250 MG, 2X/DAY
     Route: 048
     Dates: start: 20130531, end: 20130606
  3. ADALAT CR [Concomitant]
     Dosage: 40 MG, 1X/DAY
     Route: 048
     Dates: end: 20130607
  4. LOXONIN [Concomitant]
     Dosage: 60 MG, 3X/DAY
     Route: 048
     Dates: end: 20130607
  5. NEXIUM [Concomitant]
     Dosage: 20 MG, 1X/DAY
     Route: 048
     Dates: end: 20130607
  6. MAALOX [Concomitant]
     Dosage: 1.2 G, 3X/DAY
     Route: 048
     Dates: end: 20130607
  7. MAGMITT [Concomitant]
     Dosage: 330 MG, AS NEEDED
     Route: 048
  8. PURSENNID [Concomitant]
     Dosage: 12 MG, AS NEEDED
     Route: 048

REACTIONS (2)
  - Lung disorder [Fatal]
  - Radiation pneumonitis [Recovering/Resolving]
